FAERS Safety Report 11697580 (Version 1)
Quarter: 2015Q4

REPORT INFORMATION
  Report Type: Spontaneous
  Country: US (occurrence: US)
  Receive Date: 20151104
  Receipt Date: 20151104
  Transmission Date: 20160304
  Serious: Yes (Hospitalization, Other)
  Sender: FDA-Public Use
  Company Number: US-SMITH AND NEPHEW, INC-2015SMT00462

PATIENT
  Sex: Female
  Weight: 126.98 kg

DRUGS (5)
  1. DIURETICS (UNSPECIFIED) [Concomitant]
  2. INSULIN (UNSPECIFIED) [Concomitant]
  3. REGRANEX [Suspect]
     Active Substance: BECAPLERMIN
     Indication: DIABETIC FOOT
     Dosage: UNK UNK, 3X/WEEK
     Route: 061
     Dates: start: 20150721, end: 2015
  4. POTASSIUM [Concomitant]
     Active Substance: POTASSIUM
  5. PROTONIX [Concomitant]
     Active Substance: PANTOPRAZOLE SODIUM

REACTIONS (5)
  - Renal cancer [Not Recovered/Not Resolved]
  - Fluid retention [Unknown]
  - Wound complication [Unknown]
  - Inappropriate schedule of drug administration [Unknown]
  - Thrombosis [Recovered/Resolved]

NARRATIVE: CASE EVENT DATE: 2015
